FAERS Safety Report 16381532 (Version 1)
Quarter: 2019Q2

REPORT INFORMATION
  Report Type: Spontaneous
  Country: JP (occurrence: JP)
  Receive Date: 20190603
  Receipt Date: 20190603
  Transmission Date: 20190711
  Serious: Yes (Other)
  Sender: FDA-Public Use
  Company Number: JP-SUN PHARMACEUTICAL INDUSTRIES LTD-2019R1-208698

PATIENT
  Age: 43 Year
  Sex: Female

DRUGS (7)
  1. METHYLDOPA. [Suspect]
     Active Substance: METHYLDOPA
     Dosage: 2000 MILLIGRAM, DAILY
     Route: 065
  2. OLMESARTAN [Suspect]
     Active Substance: OLMESARTAN
     Indication: HYPERTENSION
     Dosage: 20 MILLIGRAM, DAILY
     Route: 065
  3. APRESOLINE HYDROCHLORIDE [Suspect]
     Active Substance: HYDRALAZINE HYDROCHLORIDE
     Dosage: 160 MILLIGRAM, DAILY
     Route: 065
  4. NIFEDIPINE RANBAXY L.P. 30MG COMPRIME PELLICULE A LIBERATION PROLONGEE [Suspect]
     Active Substance: NIFEDIPINE
     Indication: HYPERTENSION
     Dosage: 40 MILLIGRAM, DAILY
     Route: 065
  5. METHYLDOPA. [Suspect]
     Active Substance: METHYLDOPA
     Indication: HYPERTENSION
     Dosage: 1500 MILLIGRAM, DAILY
     Route: 065
  6. APRESOLINE HYDROCHLORIDE [Suspect]
     Active Substance: HYDRALAZINE HYDROCHLORIDE
     Indication: HYPERTENSION
     Dosage: 80 MILLIGRAM, DAILY
     Route: 065
  7. NIFEDIPINE RANBAXY L.P. 30MG COMPRIME PELLICULE A LIBERATION PROLONGEE [Suspect]
     Active Substance: NIFEDIPINE
     Dosage: 20 MILLIGRAM, DAILY
     Route: 065

REACTIONS (5)
  - Premature delivery [Unknown]
  - Live birth [Unknown]
  - Low birth weight baby [Unknown]
  - Exposure during pregnancy [Unknown]
  - Foetal growth restriction [Unknown]
